FAERS Safety Report 7539206-1 (Version None)
Quarter: 2011Q2

REPORT INFORMATION
  Report Type: 
  Country: None (occurrence: None)
  Receive Date: 20110610
  Receipt Date: 20110603
  Transmission Date: 20111010
  Serious: Yes (Hospitalization)
  Sender: FDA-Public Use
  Company Number: US-JNJFOC-20110602843

PATIENT
  Age: 24 Year
  Sex: Female
  Weight: 49.9 kg

DRUGS (2)
  1. LATUDA [Suspect]
     Indication: BIPOLAR DISORDER
     Route: 048
     Dates: start: 20110504, end: 20110516
  2. TOPIRAMATE [Suspect]
     Indication: PRODUCT USED FOR UNKNOWN INDICATION
     Route: 048

REACTIONS (4)
  - DIZZINESS [None]
  - CONFUSIONAL STATE [None]
  - HALLUCINATION, VISUAL [None]
  - HALLUCINATION, AUDITORY [None]
